FAERS Safety Report 4424643-4 (Version None)
Quarter: 2004Q3

REPORT INFORMATION
  Report Type: 
  Country: None (occurrence: None)
  Receive Date: 20040809
  Receipt Date: 20040708
  Transmission Date: 20050211
  Serious: Yes (Death, Other)
  Sender: FDA-Public Use
  Company Number: DE-JNJFOC-20040708237

PATIENT
  Age: 93 Year
  Sex: Male

DRUGS (19)
  1. LEVOFLOXACIN [Suspect]
     Indication: PNEUMONIA
     Dosage: INTRAVENOUS
     Route: 042
     Dates: start: 20030309, end: 20030314
  2. LEVOFLOXACIN [Suspect]
     Indication: PNEUMONIA
     Dosage: 500 MG. INTRAVENOUS
     Route: 042
     Dates: start: 20030308, end: 20030308
  3. ROCEPHIN [Concomitant]
  4. TYLENOL [Concomitant]
  5. BENADRYL [Concomitant]
  6. PROVENTIL [Concomitant]
  7. HUMIBID LA (GUAIFENESIN) [Concomitant]
  8. ATROVENT [Concomitant]
  9. DUCOLAX (BISACODYL) [Concomitant]
  10. MAGNESIUM SULFATE [Concomitant]
  11. POTASSIUM CHLORIDE [Concomitant]
  12. PHENERGAN [Concomitant]
  13. PEPCID [Concomitant]
  14. MAALOX (MAALOX) [Concomitant]
  15. PERCOCET [Concomitant]
  16. ZOSYN [Concomitant]
  17. VANCOMYCIN [Concomitant]
  18. DILAUDID [Concomitant]
  19. MORPHINE SULFATE [Concomitant]

REACTIONS (11)
  - DISEASE PROGRESSION [None]
  - HAEMATOCRIT DECREASED [None]
  - HAEMOGLOBIN DECREASED [None]
  - LEUKOCYTOSIS [None]
  - LUNG NEOPLASM MALIGNANT [None]
  - NAUSEA [None]
  - NOSOCOMIAL INFECTION [None]
  - PNEUMONIA [None]
  - PULMONARY MASS [None]
  - PYREXIA [None]
  - VOMITING [None]
